FAERS Safety Report 21225551 (Version 1)
Quarter: 2022Q3

REPORT INFORMATION
  Report Type: Spontaneous
  Country: US (occurrence: US)
  Receive Date: 20220818
  Receipt Date: 20220818
  Transmission Date: 20221026
  Serious: No
  Sender: FDA-Public Use
  Company Number: US-BRISTOL-MYERS SQUIBB COMPANY-2022-090361

PATIENT
  Age: 78 Year
  Sex: Female

DRUGS (1)
  1. REVLIMID [Suspect]
     Active Substance: LENALIDOMIDE
     Indication: Prophylaxis
     Dosage: TAKE 1 CAPSULE BY MOUTH DAILY FOR 3 WEEKS ON FOLLOWED BY 1 WEEK OFF
     Route: 048
     Dates: start: 20200303

REACTIONS (1)
  - Intentional product use issue [Unknown]
